FAERS Safety Report 7323497-6 (Version None)
Quarter: 2011Q1

REPORT INFORMATION
  Report Type: 
  Country: None (occurrence: None)
  Receive Date: 20110301
  Receipt Date: 20110221
  Transmission Date: 20110831
  Serious: Yes (Hospitalization)
  Sender: FDA-Public Use
  Company Number: CN-ROCHE-743677

PATIENT
  Age: 55 Year
  Sex: Male

DRUGS (2)
  1. AVASTIN [Suspect]
     Indication: RECTAL CANCER METASTATIC
     Route: 041
     Dates: start: 20101026, end: 20101122
  2. FOLFIRI REGIMEN [Interacting]
     Indication: RECTAL CANCER METASTATIC
     Route: 065
     Dates: start: 20101026

REACTIONS (3)
  - DRUG INTERACTION [None]
  - PROTEIN URINE PRESENT [None]
  - HEPATIC FUNCTION ABNORMAL [None]
